FAERS Safety Report 4734887-X (Version None)
Quarter: 2005Q3

REPORT INFORMATION
  Report Type: 
  Country: None (occurrence: None)
  Receive Date: 20050804
  Receipt Date: 20050105
  Transmission Date: 20060218
  Serious: Yes (Death, Other)
  Sender: FDA-Public Use
  Company Number: PHEH2005US00537

PATIENT
  Age: 75 Year
  Sex: Female

DRUGS (9)
  1. SINEMET [Concomitant]
     Dosage: 25/100, QID2SDO
     Route: 048
  2. NAMENDA [Concomitant]
     Dosage: 10 MG, BID
  3. VITAMIN B-12 [Concomitant]
     Dosage: 1000 MG, QD
     Dates: end: 20050103
  4. VITAMIN E [Concomitant]
     Dosage: 400 UNK, QD
  5. TRAZODONE HCL [Concomitant]
     Dosage: 25 MG, PRN
  6. OXYCODONE [Concomitant]
     Dosage: UNK, PRN
     Route: 048
  7. CLOZARIL [Suspect]
     Indication: PSYCHOTIC DISORDER
     Dosage: 25 MG, QD
     Route: 048
     Dates: start: 20010301, end: 20030401
  8. CLOZARIL [Suspect]
     Dosage: 25 MG, QD
     Route: 048
     Dates: start: 20040201, end: 20041201
  9. CLOZARIL [Suspect]
     Dosage: 12.5 MG, QD
     Route: 048
     Dates: start: 20041201

REACTIONS (3)
  - DEMENTIA [None]
  - DEMENTIA ALZHEIMER'S TYPE [None]
  - PNEUMONIA [None]
